FAERS Safety Report 6679858-1 (Version None)
Quarter: 2010Q2

REPORT INFORMATION
  Report Type: 
  Country: None (occurrence: None)
  Receive Date: 20100413
  Receipt Date: 20100326
  Transmission Date: 20101027
  Serious: Yes (Other)
  Sender: FDA-Public Use
  Company Number: US-GENENTECH-234770

PATIENT
  Sex: Female
  Weight: 87.981 kg

DRUGS (14)
  1. OMALIZUMAB [Suspect]
     Indication: ASTHMA
     Dosage: 150 MG, Q4W
     Dates: start: 20060202
  2. PREDNISOLONE [Concomitant]
     Indication: GASTROENTERITIS EOSINOPHILIC
  3. LISINOPRIL [Concomitant]
     Indication: HYPERTENSION
  4. AMBIEN [Concomitant]
     Indication: INSOMNIA
  5. ZOLOFT [Concomitant]
     Indication: ANXIETY
  6. ZOLOFT [Concomitant]
     Indication: DEPRESSION
  7. ADVAIR DISKUS 100/50 [Concomitant]
     Indication: ASTHMA
  8. RHINOCORT [Concomitant]
     Indication: HYPERSENSITIVITY
  9. PULMICORT [Concomitant]
     Indication: ASTHMA
  10. NASONEX [Concomitant]
     Indication: HYPERSENSITIVITY
  11. VITAMIN AND MINERAL PRENATAL SUPPLEMENT W/ FOLIC ACID CAP [Concomitant]
     Indication: PREGNANCY
  12. CELESTONE [Concomitant]
     Indication: PREMATURE RUPTURE OF MEMBRANES
     Dosage: 2 UNK, UNK
  13. AMPICILLIN [Concomitant]
     Indication: PROPHYLAXIS
  14. ZITHROMAX [Concomitant]
     Indication: PROPHYLAXIS

REACTIONS (4)
  - DRUG EXPOSURE DURING PREGNANCY [None]
  - GESTATIONAL DIABETES [None]
  - PREMATURE LABOUR [None]
  - PREMATURE RUPTURE OF MEMBRANES [None]
